FAERS Safety Report 15667475 (Version 1)
Quarter: 2018Q4

REPORT INFORMATION
  Report Type: Spontaneous
  Country: US (occurrence: US)
  Receive Date: 20181128
  Receipt Date: 20181128
  Transmission Date: 20190205
  Serious: No
  Sender: FDA-Public Use
  Company Number: US-PFIZER INC-2018479252

PATIENT
  Sex: Female

DRUGS (10)
  1. DOCETAXEL. [Suspect]
     Active Substance: DOCETAXEL
     Dosage: 06 CYCLES (EVERY THREE WEEKS)
     Dates: start: 20131014, end: 20140127
  2. TAXOTERE [Suspect]
     Active Substance: DOCETAXEL
     Dosage: 156 MG, CYCLIC (3 CYCLES)
  3. PARAPLATIN [Concomitant]
     Active Substance: CARBOPLATIN
     Dosage: 750 MG, CYCLIC (3 CYCLES)
  4. OXYCODONE [Concomitant]
     Active Substance: OXYCODONE
     Dosage: UNK
     Dates: start: 200708, end: 201711
  5. TAXOTERE [Suspect]
     Active Substance: DOCETAXEL
     Dosage: 06 CYCLES (EVERY THREE WEEKS; 160 MG OF TAXOTERE AND 156 MG OF TAXOTERE)
     Dates: start: 20131014, end: 20140127
  6. TAXOTERE [Suspect]
     Active Substance: DOCETAXEL
     Dosage: 160 MG, CYCLIC (2 CYCLES)
  7. BIOTIN [Concomitant]
     Active Substance: BIOTIN
     Dosage: UNK
     Dates: start: 2014
  8. TAXOTERE [Suspect]
     Active Substance: DOCETAXEL
     Dosage: 160 MG, CYCLIC (1 CYCLE)
  9. PARAPLATIN [Concomitant]
     Active Substance: CARBOPLATIN
     Dosage: 750 MG, CYCLIC (1 CYCLES)
  10. PARAPLATIN [Concomitant]
     Active Substance: CARBOPLATIN
     Dosage: 800 MG, CYCLIC (2 CYCLES)

REACTIONS (5)
  - Hair disorder [Not Recovered/Not Resolved]
  - Alopecia [Not Recovered/Not Resolved]
  - Hair texture abnormal [Not Recovered/Not Resolved]
  - Hair colour changes [Not Recovered/Not Resolved]
  - Madarosis [Not Recovered/Not Resolved]

NARRATIVE: CASE EVENT DATE: 201406
